FAERS Safety Report 21390522 (Version 1)
Quarter: 2022Q3

REPORT INFORMATION
  Report Type: Spontaneous
  Country: US (occurrence: None)
  Receive Date: 20220927
  Receipt Date: 20220927
  Transmission Date: 20221027
  Serious: Yes (Other)
  Sender: FDA-Public Use
  Company Number: None

PATIENT
  Age: 41 Year
  Sex: Female

DRUGS (1)
  1. DROXIDOPA [Suspect]
     Active Substance: DROXIDOPA
     Dosage: FREQUENCY : 3 TIMES A DAY;?
     Route: 048
     Dates: start: 20220802

REACTIONS (5)
  - Hyperhidrosis [None]
  - Headache [None]
  - Influenza like illness [None]
  - Vision blurred [None]
  - Incorrect dose administered [None]

NARRATIVE: CASE EVENT DATE: 20220922
